FAERS Safety Report 4774588-5 (Version None)
Quarter: 2005Q3

REPORT INFORMATION
  Report Type: 
  Country: None (occurrence: None)
  Receive Date: 20050919
  Receipt Date: 20050912
  Transmission Date: 20060218
  Serious: Yes (Hospitalization)
  Sender: FDA-Public Use
  Company Number: 2005113723

PATIENT
  Age: 18 Year
  Sex: Male

DRUGS (4)
  1. ZIPRASIDONE (CAPS) (ZIPRASIDONE) [Suspect]
     Indication: SCHIZOPHRENIA
     Dosage: 80 MG (40 MG, 2 IN 1 D), ORAL
     Route: 048
     Dates: start: 20050302, end: 20050808
  2. DIAZEPAM [Concomitant]
  3. ZUCLOPENTHIXOL (ZUCLOPENTHIXOL) [Concomitant]
  4. OLANZAPINE [Concomitant]

REACTIONS (3)
  - HYPOMANIA [None]
  - SUICIDAL IDEATION [None]
  - TREATMENT NONCOMPLIANCE [None]
